FAERS Safety Report 10153043 (Version 1)
Quarter: 2014Q2

REPORT INFORMATION
  Report Type: Other
  Country: GB (occurrence: GB)
  Receive Date: 20140505
  Receipt Date: 20140505
  Transmission Date: 20141212
  Serious: Yes (Other)
  Sender: FDA-Public Use
  Company Number: GB-PERRIGO-14GB004545

PATIENT
  Age: 22 Year
  Sex: Female
  Weight: 149.9 kg

DRUGS (1)
  1. NAPROXEN 250MG 16028/0144 [Suspect]
     Indication: LIGAMENT SPRAIN
     Dosage: 250 MG, UNK
     Route: 048

REACTIONS (1)
  - Haematemesis [Not Recovered/Not Resolved]
